FAERS Safety Report 21788279 (Version 1)
Quarter: 2022Q4

REPORT INFORMATION
  Report Type: Spontaneous
  Country: FR (occurrence: FR)
  Receive Date: 20221228
  Receipt Date: 20221228
  Transmission Date: 20230112
  Serious: No
  Sender: FDA-Public Use
  Company Number: None

PATIENT
  Age: 45 Year
  Sex: Male

DRUGS (4)
  1. PAXLOVID [Suspect]
     Active Substance: NIRMATRELVIR\RITONAVIR
     Indication: COVID-19 treatment
     Dosage: 150 MG, 1X/DAY
     Route: 048
     Dates: start: 20221202, end: 20221205
  2. DOLIPRANE [Concomitant]
     Active Substance: ACETAMINOPHEN
  3. GEMCITABINE [Concomitant]
     Active Substance: GEMCITABINE
  4. DURVALUMAB [Concomitant]
     Active Substance: DURVALUMAB

REACTIONS (4)
  - Pruritus [Not Recovered/Not Resolved]
  - Dysgeusia [Not Recovered/Not Resolved]
  - Incorrect dose administered [Unknown]
  - Incorrect product administration duration [Unknown]

NARRATIVE: CASE EVENT DATE: 20221202
